FAERS Safety Report 20246860 (Version 3)
Quarter: 2022Q1

REPORT INFORMATION
  Report Type: Report from Study
  Country: JP (occurrence: JP)
  Receive Date: 20211229
  Receipt Date: 20220105
  Transmission Date: 20220423
  Serious: Yes (Death, Other)
  Sender: FDA-Public Use
  Company Number: JP-PFIZER INC-202101859890

PATIENT

DRUGS (2)
  1. FOSPHENYTOIN SODIUM [Suspect]
     Active Substance: FOSPHENYTOIN SODIUM
     Indication: Epilepsy
     Dosage: UNK
     Route: 065
  2. PHENOBARBITAL SODIUM [Suspect]
     Active Substance: PHENOBARBITAL SODIUM
     Indication: Epilepsy
     Dosage: UNK
     Route: 065

REACTIONS (15)
  - Skin reaction [Fatal]
  - Rash [Fatal]
  - Urticaria [Fatal]
  - Pruritus [Fatal]
  - Erythema multiforme [Fatal]
  - Skin reaction [Fatal]
  - Stevens-Johnson syndrome [Fatal]
  - Toxic epidermal necrolysis [Fatal]
  - Drug reaction with eosinophilia and systemic symptoms [Fatal]
  - Hepatic failure [Fatal]
  - Renal impairment [Fatal]
  - Pyrexia [Fatal]
  - Diarrhoea [Fatal]
  - Cardio-respiratory arrest [Fatal]
  - Drug hypersensitivity [Fatal]
